FAERS Safety Report 6525313-9 (Version None)
Quarter: 2009Q4

REPORT INFORMATION
  Report Type: 
  Country: None (occurrence: None)
  Receive Date: 20091222
  Receipt Date: 20091204
  Transmission Date: 20100525
  Serious: Yes (Hospitalization)
  Sender: FDA-Public Use
  Company Number: AUR-APL-2009-01533

PATIENT
  Sex: Female

DRUGS (1)
  1. METFORMIN HCL [Suspect]

REACTIONS (1)
  - HYPOGLYCAEMIC COMA [None]
